FAERS Safety Report 7946797-5 (Version None)
Quarter: 2011Q4

REPORT INFORMATION
  Report Type: 
  Country: None (occurrence: None)
  Receive Date: 20111129
  Receipt Date: 20111121
  Transmission Date: 20120403
  Serious: Yes (Hospitalization, Other)
  Sender: FDA-Public Use
  Company Number: US-ABBOTT-11P-163-0849775-00

PATIENT
  Age: 33 Year
  Sex: Female

DRUGS (15)
  1. TRAMADOL HCL [Concomitant]
     Indication: PRODUCT USED FOR UNKNOWN INDICATION
  2. OXYCODONE HCL [Concomitant]
     Indication: PRODUCT USED FOR UNKNOWN INDICATION
     Dosage: THREE TIMES DAILY
  3. PROBIOTIC [Concomitant]
     Indication: PRODUCT USED FOR UNKNOWN INDICATION
  4. COMPAZINE [Concomitant]
     Indication: NAUSEA
  5. METHOTREXATE [Suspect]
     Indication: RHEUMATOID ARTHRITIS
  6. ARAVA [Suspect]
     Indication: PRODUCT USED FOR UNKNOWN INDICATION
  7. LEVSIN [Concomitant]
     Indication: PRODUCT USED FOR UNKNOWN INDICATION
     Dosage: TWICE DAILY
  8. AMBIEN [Concomitant]
     Indication: PRODUCT USED FOR UNKNOWN INDICATION
  9. HUMIRA [Suspect]
     Indication: RHEUMATOID ARTHRITIS
     Dates: start: 20110811
  10. SYNTHROID [Concomitant]
     Indication: PRODUCT USED FOR UNKNOWN INDICATION
  11. PLAQUENIL [Suspect]
     Indication: RHEUMATOID ARTHRITIS
  12. VIVELLE [Concomitant]
     Indication: PRODUCT USED FOR UNKNOWN INDICATION
     Dosage: PATCH, TWICE WEEKLY
  13. ATIVAN [Concomitant]
     Indication: PRODUCT USED FOR UNKNOWN INDICATION
  14. BYTRENS PATCH [Concomitant]
     Indication: PRODUCT USED FOR UNKNOWN INDICATION
     Dosage: 10 MCG/HR
  15. METHOTREXATE [Suspect]
     Indication: CROHN'S DISEASE

REACTIONS (9)
  - VOMITING [None]
  - CLOSTRIDIAL INFECTION [None]
  - INJECTION SITE PAIN [None]
  - CROHN'S DISEASE [None]
  - ALOPECIA [None]
  - DIARRHOEA HAEMORRHAGIC [None]
  - INJECTION SITE ERYTHEMA [None]
  - NAUSEA [None]
  - MALAISE [None]
